FAERS Safety Report 6929758-4 (Version None)
Quarter: 2010Q3

REPORT INFORMATION
  Report Type: 
  Country: None (occurrence: None)
  Receive Date: 20100818
  Receipt Date: 20100817
  Transmission Date: 20110219
  Serious: Yes (Death, Hospitalization)
  Sender: FDA-Public Use
  Company Number: IT-SANOFI-AVENTIS-2010SA048304

PATIENT
  Age: 68 Year
  Sex: Male

DRUGS (4)
  1. RIFADIN [Suspect]
     Route: 048
     Dates: start: 20100309, end: 20100518
  2. LEVOFLOXACIN [Concomitant]
     Route: 048
     Dates: start: 20100309, end: 20100518
  3. CLEXANE [Concomitant]
     Indication: PRODUCT USED FOR UNKNOWN INDICATION
     Route: 058
  4. ESOPRAL [Concomitant]
     Indication: PRODUCT USED FOR UNKNOWN INDICATION
     Route: 065

REACTIONS (3)
  - HEPATITIS ACUTE [None]
  - HEPATORENAL FAILURE [None]
  - JAUNDICE [None]
